FAERS Safety Report 16869078 (Version 3)
Quarter: 2019Q4

REPORT INFORMATION
  Report Type: Spontaneous
  Country: JP (occurrence: JP)
  Receive Date: 20190930
  Receipt Date: 20191227
  Transmission Date: 20200122
  Serious: Yes (Hospitalization, Disabling)
  Sender: FDA-Public Use
  Company Number: PHJP2019JP012657

PATIENT
  Age: 54 Year
  Sex: Female
  Weight: 74.7 kg

DRUGS (3)
  1. METOLATE [Suspect]
     Active Substance: METHOTREXATE
     Indication: PSORIASIS
     Dosage: 2 MG, TID
     Route: 048
     Dates: start: 20190415, end: 20191009
  2. COSENTYX [Suspect]
     Active Substance: SECUKINUMAB
     Indication: PSORIATIC ARTHROPATHY
     Dosage: 300 MG, QW
     Route: 058
     Dates: start: 20190808, end: 20191009
  3. COSENTYX [Suspect]
     Active Substance: SECUKINUMAB
     Indication: PSORIASIS
     Dosage: 300 MG, QMO
     Route: 058
     Dates: start: 20191010

REACTIONS (3)
  - Ovarian cancer [Recovered/Resolved with Sequelae]
  - Pain in extremity [Recovering/Resolving]
  - Metastases to peritoneum [Not Recovered/Not Resolved]

NARRATIVE: CASE EVENT DATE: 20190829
